FAERS Safety Report 19888245 (Version 1)
Quarter: 2021Q3

REPORT INFORMATION
  Report Type: Report from Study
  Country: GB (occurrence: GB)
  Receive Date: 20210927
  Receipt Date: 20210927
  Transmission Date: 20211014
  Serious: Yes (Hospitalization, Other)
  Sender: FDA-Public Use
  Company Number: NVSC2021GB216926

PATIENT
  Sex: Female

DRUGS (1)
  1. OMNITROPE [Suspect]
     Active Substance: SOMATROPIN
     Indication: AUTISM SPECTRUM DISORDER
     Dosage: UNK
     Route: 065

REACTIONS (4)
  - Sepsis [Unknown]
  - Product use in unapproved indication [Unknown]
  - Loss of consciousness [Unknown]
  - Type 2 diabetes mellitus [Unknown]
